FAERS Safety Report 24447147 (Version 2)
Quarter: 2024Q4

REPORT INFORMATION
  Report Type: Spontaneous
  Country: US (occurrence: US)
  Receive Date: 20241016
  Receipt Date: 20241210
  Transmission Date: 20250114
  Serious: No
  Sender: SANOFI AVENTIS
  Company Number: US-SA-SAC20240620000787

PATIENT
  Age: 22 Year
  Sex: Male
  Weight: 79.3 kg

DRUGS (7)
  1. DUPIXENT [Suspect]
     Active Substance: DUPILUMAB
     Indication: Dermatitis atopic
     Dosage: 600 MG, 1X
     Route: 058
     Dates: start: 20240205, end: 20240205
  2. DUPIXENT [Suspect]
     Active Substance: DUPILUMAB
     Dosage: 300 MG, QOW
     Route: 058
     Dates: start: 202402, end: 202409
  3. PANTOPRAZOLE SODIUM [Concomitant]
     Active Substance: PANTOPRAZOLE SODIUM
  4. FINASTERIDE [Concomitant]
     Active Substance: FINASTERIDE
  5. VITAMIN D2 [Concomitant]
     Active Substance: ERGOCALCIFEROL
  6. HERBALS\TURMERIC [Concomitant]
     Active Substance: HERBALS\TURMERIC
  7. SKYRIZI [Concomitant]
     Active Substance: RISANKIZUMAB-RZAA

REACTIONS (3)
  - Psoriasis [Unknown]
  - Injection site discomfort [Recovered/Resolved]
  - Product preparation error [Unknown]

NARRATIVE: CASE EVENT DATE: 20240101
